FAERS Safety Report 19637857 (Version 4)
Quarter: 2021Q3

REPORT INFORMATION
  Report Type: Report from Study
  Country: IT (occurrence: IT)
  Receive Date: 20210730
  Receipt Date: 20210825
  Transmission Date: 20211014
  Serious: Yes (Death, Hospitalization)
  Sender: FDA-Public Use
  Company Number: IT-ROCHE-2878939

PATIENT
  Age: 45 Year
  Sex: Female

DRUGS (8)
  1. CHOLECALCIFEROL [Concomitant]
     Active Substance: CHOLECALCIFEROL
     Dosage: 25 DROPS/WEEK
  2. RITUXIMAB. [Suspect]
     Active Substance: RITUXIMAB
     Indication: MARGINAL ZONE LYMPHOMA
     Dosage: ON DAY 1
     Route: 041
     Dates: start: 20210712
  3. NEBIVOLOL. [Concomitant]
     Active Substance: NEBIVOLOL
  4. HYLO COMOD [Concomitant]
     Active Substance: HYALURONATE SODIUM
  5. AMLODIPINE [Concomitant]
     Active Substance: AMLODIPINE BESYLATE
  6. IBRUTINIB [Suspect]
     Active Substance: IBRUTINIB
     Indication: MARGINAL ZONE LYMPHOMA
     Dosage: LAST DOSE OF DRUG PRIOR TO SAE WAS 25/JUL/2021
     Route: 048
     Dates: start: 20210712, end: 20210725
  7. ALLOPURINOL. [Concomitant]
     Active Substance: ALLOPURINOL
     Dates: start: 20210709
  8. RITUXIMAB. [Suspect]
     Active Substance: RITUXIMAB
     Indication: MARGINAL ZONE LYMPHOMA
     Dosage: LAST DOSE OF DRUG PRIOR TO SAE WAS 19/JUL/2021, DAY 8, 15, 22 OF CYCLE 1
     Route: 058
     Dates: start: 20210712, end: 20210725

REACTIONS (1)
  - Pneumonitis [Fatal]

NARRATIVE: CASE EVENT DATE: 20210725
